FAERS Safety Report 12492853 (Version 1)
Quarter: 2016Q2

REPORT INFORMATION
  Report Type: Spontaneous
  Country: US (occurrence: US)
  Receive Date: 20160623
  Receipt Date: 20160623
  Transmission Date: 20160815
  Serious: No
  Sender: FDA-Public Use
  Company Number: US-PFIZER INC-2016314231

PATIENT
  Sex: Female

DRUGS (5)
  1. EPINEPHRINE. [Suspect]
     Active Substance: EPINEPHRINE
  2. CEFEPIME HCL [Suspect]
     Active Substance: CEFEPIME HYDROCHLORIDE
  3. FUROSEMIDE. [Suspect]
     Active Substance: FUROSEMIDE
  4. GABIROL [Suspect]
     Active Substance: RIMANTADINE HYDROCHLORIDE
  5. PROCHLORPERAZINE. [Suspect]
     Active Substance: PROCHLORPERAZINE

REACTIONS (1)
  - Drug hypersensitivity [Unknown]
